FAERS Safety Report 13302003 (Version 1)
Quarter: 2017Q1

REPORT INFORMATION
  Report Type: Spontaneous
  Country: US (occurrence: US)
  Receive Date: 20170307
  Receipt Date: 20170307
  Transmission Date: 20170428
  Serious: Yes (Hospitalization)
  Sender: FDA-Public Use
  Company Number: None

PATIENT
  Age: 68 Year
  Sex: Male
  Weight: 78.3 kg

DRUGS (3)
  1. OBINUTUZUMAB 1000MG [Suspect]
     Active Substance: OBINUTUZUMAB
     Indication: CHRONIC LYMPHOCYTIC LEUKAEMIA
     Route: 042
     Dates: start: 20160607, end: 20161205
  2. VENETOCLAX [Concomitant]
     Active Substance: VENETOCLAX
  3. IBRUTINIB [Suspect]
     Active Substance: IBRUTINIB
     Indication: CHRONIC LYMPHOCYTIC LEUKAEMIA
     Route: 048
     Dates: start: 20160711

REACTIONS (7)
  - Large intestine perforation [None]
  - Traumatic liver injury [None]
  - Neutropenia [None]
  - Bacterial infection [None]
  - Sepsis [None]
  - Infectious colitis [None]
  - Renal failure [None]

NARRATIVE: CASE EVENT DATE: 20170303
